FAERS Safety Report 6599003-0 (Version None)
Quarter: 2010Q1

REPORT INFORMATION
  Report Type: 
  Country: None (occurrence: None)
  Receive Date: 20100224
  Receipt Date: 20090622
  Transmission Date: 20100710
  Serious: No
  Sender: FDA-Public Use
  Company Number: US-BRISTOL-MYERS SQUIBB COMPANY-14663629

PATIENT
  Age: 78 Year
  Sex: Male

DRUGS (1)
  1. GLUCOPHAGE [Suspect]
     Indication: DIABETES MELLITUS
     Dosage: 1 DOSAGE FORM = 1 TABLET. WAS TAKING 2 TABLETS. STARTED 1YEAR AGO
     Route: 048

REACTIONS (2)
  - GASTROINTESTINAL DISORDER [None]
  - WEIGHT DECREASED [None]
